FAERS Safety Report 25497018 (Version 1)
Quarter: 2025Q3

REPORT INFORMATION
  Report Type: Spontaneous
  Country: US (occurrence: US)
  Receive Date: 20250701
  Receipt Date: 20250701
  Transmission Date: 20251021
  Serious: Yes (Death, Life-Threatening, Hospitalization)
  Sender: STRIDES
  Company Number: None

PATIENT
  Age: 15 Year
  Sex: Male
  Weight: 71.7 kg

DRUGS (12)
  1. PREDNISONE [Suspect]
     Active Substance: PREDNISONE
     Indication: Papilloedema
     Route: 048
     Dates: start: 20220817
  2. PREDNISONE [Suspect]
     Active Substance: PREDNISONE
     Indication: Hereditary retinal dystrophy
  3. PREDNISONE [Suspect]
     Active Substance: PREDNISONE
     Indication: Neuromyelitis optica spectrum disorder
  4. PREDNISONE [Suspect]
     Active Substance: PREDNISONE
     Indication: Papilloedema
     Route: 042
     Dates: start: 20230123
  5. PREDNISONE [Suspect]
     Active Substance: PREDNISONE
     Indication: Hereditary retinal dystrophy
  6. PREDNISONE [Suspect]
     Active Substance: PREDNISONE
     Indication: Neuromyelitis optica spectrum disorder
  7. METHYLPREDNISOLONE [Suspect]
     Active Substance: METHYLPREDNISOLONE
     Indication: Papilloedema
     Route: 042
     Dates: start: 20220714, end: 20220716
  8. METHYLPREDNISOLONE [Suspect]
     Active Substance: METHYLPREDNISOLONE
     Indication: Hereditary retinal dystrophy
     Route: 042
     Dates: start: 20220809, end: 2022
  9. METHYLPREDNISOLONE [Suspect]
     Active Substance: METHYLPREDNISOLONE
     Indication: Neuromyelitis optica spectrum disorder
     Route: 042
     Dates: start: 20221224
  10. TOCILIZUMAB [Suspect]
     Active Substance: TOCILIZUMAB
     Indication: Neuromyelitis optica spectrum disorder
     Route: 042
     Dates: start: 20221228, end: 20230505
  11. RITUXIMAB [Concomitant]
     Active Substance: RITUXIMAB
     Indication: Blindness
     Route: 048
     Dates: start: 202210
  12. Immune globulin [Concomitant]
     Indication: Neuromyelitis optica spectrum disorder
     Route: 042
     Dates: start: 20220728

REACTIONS (9)
  - Disseminated aspergillosis [Fatal]
  - Duodenal perforation [Fatal]
  - Abdominal infection [Fatal]
  - Bacteraemia [Fatal]
  - Hepatic failure [Fatal]
  - Renal failure [Fatal]
  - Multiple organ dysfunction syndrome [Fatal]
  - Gastrointestinal haemorrhage [Fatal]
  - Fungal peritonitis [Fatal]

NARRATIVE: CASE EVENT DATE: 20230101
